FAERS Safety Report 9460602 (Version 1)
Quarter: 2013Q3

REPORT INFORMATION
  Report Type: Spontaneous
  Country: DK (occurrence: GB)
  Receive Date: 20130815
  Receipt Date: 20130815
  Transmission Date: 20140515
  Serious: Yes (Disabling)
  Sender: FDA-Public Use
  Company Number: GB-FRI-1000047795

PATIENT
  Age: 54 Year
  Sex: Male

DRUGS (1)
  1. CITALOPRAM [Suspect]
     Indication: DEPRESSION
     Dosage: 20 MG
     Route: 048
     Dates: end: 20130520

REACTIONS (2)
  - Saliva altered [Recovered/Resolved]
  - Dysgeusia [Recovered/Resolved]
